FAERS Safety Report 14258792 (Version 1)
Quarter: 2017Q4

REPORT INFORMATION
  Report Type: Spontaneous
  Country: US (occurrence: None)
  Receive Date: 20171207
  Receipt Date: 20171207
  Transmission Date: 20180321
  Serious: Yes (Other)
  Sender: FDA-Public Use
  Company Number: None

PATIENT
  Age: 30 Year
  Sex: Male
  Weight: 79.83 kg

DRUGS (4)
  1. INVEGA TRINZA [Suspect]
     Active Substance: PALIPERIDONE PALMITATE
     Indication: SCHIZOPHRENIA
     Dosage: 819 MG EVERY 3-4 MONTHS INJECTION
     Dates: start: 20170118, end: 20170625
  2. TOTAL VITAMIN [Concomitant]
  3. VITAMIN D [Concomitant]
     Active Substance: CHOLECALCIFEROL
  4. RISPERIDONE. [Concomitant]
     Active Substance: RISPERIDONE

REACTIONS (13)
  - Abnormal behaviour [None]
  - Psychotic disorder [None]
  - Mood altered [None]
  - Withdrawal syndrome [None]
  - Obsessive thoughts [None]
  - Agitation [None]
  - Physical assault [None]
  - Sleep disorder [None]
  - Mania [None]
  - Nicotine dependence [None]
  - Therapy change [None]
  - Psychomotor hyperactivity [None]
  - Tardive dyskinesia [None]
